FAERS Safety Report 10056285 (Version 1)
Quarter: 2014Q2

REPORT INFORMATION
  Report Type: Spontaneous
  Country: US (occurrence: None)
  Receive Date: 20140401
  Receipt Date: 20140401
  Transmission Date: 20141212
  Serious: Yes (Hospitalization)
  Sender: FDA-Public Use
  Company Number: 140098

PATIENT
  Age: 62 Year
  Sex: Female

DRUGS (2)
  1. SUPREP BOWEL PREP KIT [Suspect]
     Indication: COLONOSCOPY
     Dosage: 1 X 6 OZ BOTTLE 1X PO
     Route: 048
     Dates: start: 20140324, end: 20140324
  2. PENTASA [Concomitant]

REACTIONS (2)
  - Abdominal pain upper [None]
  - Abdominal distension [None]
